FAERS Safety Report 10334974 (Version 3)
Quarter: 2014Q3

REPORT INFORMATION
  Report Type: Spontaneous
  Country: CA (occurrence: CA)
  Receive Date: 20140723
  Receipt Date: 20140912
  Transmission Date: 20150326
  Serious: Yes (Life-Threatening, Hospitalization)
  Sender: FDA-Public Use
  Company Number: PHHY2014CA088425

PATIENT
  Sex: Female

DRUGS (6)
  1. CLARITHROMYCIN. [Suspect]
     Active Substance: CLARITHROMYCIN
     Dosage: UNK UKN, UNK
  2. CIPRALEX [Suspect]
     Active Substance: ESCITALOPRAM OXALATE
  3. PREDNISONE. [Concomitant]
     Active Substance: PREDNISONE
     Dosage: UNK UKN, UNK
  4. MELOXICAM. [Concomitant]
     Active Substance: MELOXICAM
  5. SEEBRI BREEZHALER [Suspect]
     Active Substance: GLYCOPYRRONIUM
     Indication: CHRONIC OBSTRUCTIVE PULMONARY DISEASE
     Dosage: UNK UKN, UNK
     Route: 055
  6. ADVAIR HFA [Concomitant]
     Active Substance: FLUTICASONE PROPIONATE\SALMETEROL XINAFOATE

REACTIONS (27)
  - Cough [Unknown]
  - Chest discomfort [Unknown]
  - Depression [Unknown]
  - Mobility decreased [Unknown]
  - Poor quality sleep [Unknown]
  - Hernia pain [Unknown]
  - Moaning [Unknown]
  - Insomnia [Unknown]
  - General physical health deterioration [Unknown]
  - Diarrhoea [Unknown]
  - Chronic obstructive pulmonary disease [Unknown]
  - Asthenia [Unknown]
  - Pain [Unknown]
  - Drug ineffective [Unknown]
  - Malaise [Unknown]
  - Hiatus hernia [Unknown]
  - Panic disorder [Unknown]
  - Fatigue [Unknown]
  - Skin discolouration [Unknown]
  - Feeling abnormal [Unknown]
  - Lung infection [Unknown]
  - Dyspnoea [Unknown]
  - Pruritus [Unknown]
  - Decreased appetite [Unknown]
  - Gait disturbance [Unknown]
  - Restlessness [Unknown]
  - Hypoaesthesia [Unknown]
